FAERS Safety Report 12888934 (Version 1)
Quarter: 2016Q4

REPORT INFORMATION
  Report Type: Spontaneous
  Country: PT (occurrence: PT)
  Receive Date: 20161027
  Receipt Date: 20161027
  Transmission Date: 20170207
  Serious: Yes (Hospitalization)
  Sender: FDA-Public Use
  Company Number: PT-FRESENIUS KABI-FK201608185

PATIENT
  Age: 4 Year
  Sex: Male

DRUGS (1)
  1. VANCOMYCIN (MANUFACTURER UNKNOWN) [Suspect]
     Active Substance: VANCOMYCIN
     Indication: MENINGITIS FUNGAL
     Route: 065

REACTIONS (2)
  - Stenotrophomonas infection [Recovered/Resolved]
  - Meningitis bacterial [Recovered/Resolved]
